FAERS Safety Report 6308337-6 (Version None)
Quarter: 2009Q3

REPORT INFORMATION
  Report Type: 
  Country: None (occurrence: None)
  Receive Date: 20090813
  Receipt Date: 20090803
  Transmission Date: 20100115
  Serious: Yes (Hospitalization)
  Sender: FDA-Public Use
  Company Number: IT-ABBOTT-09P-083-0589052-00

PATIENT
  Age: 44 Year
  Sex: Male

DRUGS (7)
  1. RITONAVIR SOFT GELATIN CAPSULES [Suspect]
     Indication: HIV INFECTION
     Dates: start: 20081001
  2. TENOFOVIR DISOPROXIL FUMARATE [Suspect]
     Indication: HIV INFECTION
     Dates: start: 20081001
  3. STAVUDINE [Suspect]
     Indication: HIV INFECTION
     Dates: start: 20081001
  4. DARUNAVIR [Suspect]
     Indication: HIV INFECTION
     Dates: start: 20081001
  5. TAB MK-0518 BLINDED THERAPY [Suspect]
     Indication: HIV INFECTION
     Route: 048
     Dates: start: 20060906
  6. TAB MK-0518 BLINDED THERAPY [Suspect]
     Route: 048
     Dates: start: 20081001
  7. TAB MK-0518 BLINDED THERAPY [Suspect]
     Route: 048
     Dates: start: 20081001

REACTIONS (1)
  - DIFFUSE LARGE B-CELL LYMPHOMA [None]
